FAERS Safety Report 8864936 (Version 2)
Quarter: 2013Q3

REPORT INFORMATION
  Report Type: Spontaneous
  Country: US (occurrence: US)
  Receive Date: 20121024
  Receipt Date: 20130930
  Transmission Date: 20140515
  Serious: No
  Sender: FDA-Public Use
  Company Number: US-AMGEN-USASP2012000350

PATIENT
  Age: 48 Year
  Sex: Male
  Weight: 65.76 kg

DRUGS (5)
  1. ENBREL [Suspect]
     Indication: RHEUMATOID ARTHRITIS
     Dosage: 50 MG, QWK
     Route: 058
     Dates: end: 2013
  2. LEVOTHYROXIN [Concomitant]
     Dosage: 100 MUG, UNK
  3. HUMIRA [Concomitant]
     Dosage: 40 MG, UNK
  4. ADVAIR [Concomitant]
     Dosage: UNK
  5. PREDNISONE [Concomitant]
     Dosage: 1 MG, UNK

REACTIONS (7)
  - Hypersensitivity [Unknown]
  - Therapeutic response decreased [Unknown]
  - Insomnia [Unknown]
  - Salivary gland disorder [Unknown]
  - Weight decreased [Unknown]
  - Rheumatoid arthritis [Unknown]
  - Injection site reaction [Unknown]
